FAERS Safety Report 6707985-9 (Version None)
Quarter: 2010Q2

REPORT INFORMATION
  Report Type: 
  Country: None (occurrence: None)
  Receive Date: 20100503
  Receipt Date: 20080721
  Transmission Date: 20101027
  Serious: Yes (Other)
  Sender: FDA-Public Use
  Company Number: BR-BAYER-200813051LA

PATIENT
  Age: 28 Year
  Sex: Male

DRUGS (1)
  1. BETAFERON [Suspect]
     Indication: RELAPSING-REMITTING MULTIPLE SCLEROSIS
     Dosage: BETAFERON'S INJECTION EVERY MONDAY, WEDNESDAY AND FRIDAY
     Route: 058
     Dates: start: 20080201

REACTIONS (8)
  - HEADACHE [None]
  - INJECTION SITE DISCOLOURATION [None]
  - INJECTION SITE NODULE [None]
  - INJECTION SITE PAIN [None]
  - INJECTION SITE SWELLING [None]
  - LIVER DISORDER [None]
  - PRURITUS [None]
  - SENSATION OF HEAVINESS [None]
